FAERS Safety Report 6330872-5 (Version None)
Quarter: 2009Q3

REPORT INFORMATION
  Report Type: 
  Country: None (occurrence: None)
  Receive Date: 20090827
  Receipt Date: 20090818
  Transmission Date: 20100115
  Serious: Yes (Life-Threatening, Hospitalization)
  Sender: FDA-Public Use
  Company Number: US-AMGEN-QUU360731

PATIENT
  Sex: Female

DRUGS (2)
  1. ENBREL [Suspect]
     Indication: ANKYLOSING SPONDYLITIS
     Route: 058
     Dates: start: 20000101
  2. PLAQUENIL [Concomitant]
     Route: 048
     Dates: start: 20090817

REACTIONS (6)
  - HIP ARTHROPLASTY [None]
  - INDURATION [None]
  - INFLUENZA LIKE ILLNESS [None]
  - PALLOR [None]
  - RASH [None]
  - THERAPEUTIC RESPONSE DECREASED [None]
